FAERS Safety Report 16275108 (Version 1)
Quarter: 2019Q2

REPORT INFORMATION
  Report Type: Spontaneous
  Country: US (occurrence: US)
  Receive Date: 20190401
  Receipt Date: 20190401
  Transmission Date: 20190711
  Serious: No
  Sender: FDA-Public Use
  Company Number: None

PATIENT
  Age: 70 Year
  Sex: Male
  Weight: 139.71 kg

DRUGS (1)
  1. LUPRON DEPOT [Suspect]
     Active Substance: LEUPROLIDE ACETATE
     Indication: PROSTATE CANCER
     Dosage: ?          OTHER FREQUENCY:6 MONTHS AS DIR ;?
     Route: 030
     Dates: start: 201809

REACTIONS (4)
  - Hot flush [None]
  - Chest pain [None]
  - Restless legs syndrome [None]
  - Blood testosterone decreased [None]
